FAERS Safety Report 24020971 (Version 1)
Quarter: 2024Q2

REPORT INFORMATION
  Report Type: Spontaneous
  Country: PT (occurrence: PT)
  Receive Date: 20240627
  Receipt Date: 20240627
  Transmission Date: 20240716
  Serious: Yes (Hospitalization, Other)
  Sender: FDA-Public Use
  Company Number: PT-NOVOPROD-1241815

PATIENT
  Age: 56 Year
  Sex: Male

DRUGS (1)
  1. VICTOZA [Suspect]
     Active Substance: LIRAGLUTIDE
     Indication: Product used for unknown indication
     Dosage: 1.8
     Dates: start: 20240301, end: 20240508

REACTIONS (2)
  - Intestinal obstruction [Unknown]
  - Diarrhoea [Unknown]
